FAERS Safety Report 17398769 (Version 3)
Quarter: 2020Q4

REPORT INFORMATION
  Report Type: Spontaneous
  Country: FR (occurrence: FR)
  Receive Date: 20200210
  Receipt Date: 20201221
  Transmission Date: 20210113
  Serious: Yes (Hospitalization, Other)
  Sender: FDA-Public Use
  Company Number: FR-PFIZER INC-2020052511

PATIENT
  Age: 76 Year
  Sex: Female

DRUGS (6)
  1. PREGABALINE PFIZER [Suspect]
     Active Substance: PREGABALIN
     Indication: GAIT DISTURBANCE
     Dosage: 50 MILLIGRAM, QD
     Route: 048
     Dates: start: 20191215, end: 20191230
  2. DULOXETINE. [Suspect]
     Active Substance: DULOXETINE
     Indication: GAIT DISTURBANCE
     Dosage: 60 MILLIGRAM
     Route: 048
     Dates: start: 20191211, end: 20200109
  3. KARDEGIC [Suspect]
     Active Substance: ASPIRIN DL-LYSINE
     Indication: MYOCARDIAL ISCHAEMIA
     Dosage: 75 MILLIGRAM, QD
     Route: 042
     Dates: start: 20191211
  4. ALLOPURINOL. [Suspect]
     Active Substance: ALLOPURINOL
     Indication: TUMOUR LYSIS SYNDROME
     Dosage: 100 MILLIGRAM, QD
     Route: 048
     Dates: end: 20200109
  5. PANTOPRAZOLE [Suspect]
     Active Substance: PANTOPRAZOLE
     Dosage: 20 MG, 1X/DAY
     Route: 048
     Dates: end: 20200109
  6. FUROSEMIDE. [Suspect]
     Active Substance: FUROSEMIDE
     Indication: HYPERTENSION
     Dosage: 80 MILLIGRAM, QD
     Route: 042
     Dates: start: 20191211, end: 202001

REACTIONS (1)
  - Agranulocytosis [Recovered/Resolved]

NARRATIVE: CASE EVENT DATE: 20191216
